FAERS Safety Report 4898730-0 (Version None)
Quarter: 2006Q1

REPORT INFORMATION
  Report Type: 
  Country: None (occurrence: None)
  Receive Date: 20060131
  Receipt Date: 20060123
  Transmission Date: 20060701
  Serious: Yes (Life-Threatening, Hospitalization)
  Sender: FDA-Public Use
  Company Number: 2006011203

PATIENT
  Age: 77 Year
  Sex: Female

DRUGS (9)
  1. EXEMESTANE [Suspect]
     Indication: BREAST CANCER
     Dosage: 25 MG (25 MG, 1 IN 1 D)
     Dates: start: 20050516
  2. ALBUTEROL [Concomitant]
  3. ACCOLATE [Concomitant]
  4. SYNTHROID [Concomitant]
  5. ISOPTIN [Concomitant]
  6. TRICOR [Concomitant]
  7. MOBIC [Concomitant]
  8. LORAZEPAM [Concomitant]
  9. ACETAMINOPHEN [Concomitant]

REACTIONS (4)
  - BACK PAIN [None]
  - CONSTIPATION [None]
  - DEEP VEIN THROMBOSIS [None]
  - PULMONARY EMBOLISM [None]
